FAERS Safety Report 5567618-4 (Version None)
Quarter: 2007Q4

REPORT INFORMATION
  Report Type: 
  Country: None (occurrence: None)
  Receive Date: 20071219
  Receipt Date: 20071210
  Transmission Date: 20080405
  Serious: Yes (Death, Hospitalization)
  Sender: FDA-Public Use
  Company Number: JP-PFIZER INC-2007103908

PATIENT
  Sex: Male
  Weight: 77.9 kg

DRUGS (10)
  1. ZYVOX [Suspect]
     Indication: ABDOMINAL ABSCESS
     Route: 042
     Dates: start: 20061124, end: 20061201
  2. AMARYL [Concomitant]
     Route: 048
     Dates: start: 20061104, end: 20061201
  3. MICARDIS [Concomitant]
     Route: 048
     Dates: start: 20061104, end: 20061201
  4. NORVASC [Concomitant]
     Route: 048
     Dates: start: 20061104, end: 20061201
  5. MAGNESIUM OXIDE [Concomitant]
     Indication: CONSTIPATION
     Route: 048
     Dates: start: 20061104, end: 20061201
  6. ALOSENN [Concomitant]
     Indication: CONSTIPATION
     Route: 048
     Dates: start: 20061104, end: 20061201
  7. OMEPRAL [Concomitant]
     Route: 042
     Dates: start: 20061127, end: 20061202
  8. ALBUMINAR [Concomitant]
     Route: 042
     Dates: start: 20061127, end: 20061202
  9. TARGOCID [Concomitant]
     Dosage: DAILY DOSE:200MG
     Route: 042
     Dates: start: 20061113, end: 20061123
  10. DORIBAX [Concomitant]
     Dosage: DAILY DOSE:500MG
     Route: 042
     Dates: start: 20061113, end: 20061123

REACTIONS (3)
  - DISSEMINATED INTRAVASCULAR COAGULATION [None]
  - HAEMOGLOBIN DECREASED [None]
  - PLATELET COUNT DECREASED [None]
